FAERS Safety Report 4334344-9 (Version None)
Quarter: 2004Q2

REPORT INFORMATION
  Report Type: 
  Country: None (occurrence: None)
  Receive Date: 20040405
  Receipt Date: 20040308
  Transmission Date: 20050107
  Serious: Yes (Death)
  Sender: FDA-Public Use
  Company Number: A06200400072

PATIENT
  Age: 2 Day
  Sex: Female

DRUGS (6)
  1. KAYEXALATE [Suspect]
     Indication: HYPERKALAEMIA
     Dosage: 1000 MG/KG Q1HR
  2. CALCIUM GLUCONATE [Concomitant]
  3. INSULIN [Concomitant]
  4. GLUCOSE (GLUCOSE) [Concomitant]
  5. SALBUTAMOL (SALBUTAMOL) [Concomitant]
  6. INOTROPIC DRUG NOS (CARDIAC STIMULANTS) [Concomitant]

REACTIONS (11)
  - BLOOD CREATININE DECREASED [None]
  - BLOOD PH DECREASED [None]
  - CEREBRAL HAEMORRHAGE NEONATAL [None]
  - DEATH NEONATAL [None]
  - ELECTROCARDIOGRAM QRS COMPLEX PROLONGED [None]
  - ELECTROCARDIOGRAM T WAVE AMPLITUDE INCREASED [None]
  - HAEMATOCRIT DECREASED [None]
  - HAEMOGLOBIN DECREASED [None]
  - HYPERNATRAEMIA [None]
  - NEONATAL DISORDER [None]
  - SHOCK HAEMORRHAGIC [None]
